FAERS Safety Report 5821110-8 (Version None)
Quarter: 2008Q3

REPORT INFORMATION
  Report Type: 
  Country: None (occurrence: None)
  Receive Date: 20080724
  Receipt Date: 20080715
  Transmission Date: 20090109
  Serious: Yes (Hospitalization)
  Sender: FDA-Public Use
  Company Number: US-WATSON-2008-03618

PATIENT
  Sex: Female
  Weight: 78 kg

DRUGS (2)
  1. FERRLECIT [Suspect]
     Indication: IRON DEFICIENCY ANAEMIA
     Dosage: 250 MG, INFUSED OVER 1 HOUR WITH 100ML NS
     Route: 042
     Dates: start: 20080610, end: 20080610
  2. OMEPRAZOLE [Concomitant]
     Indication: DRUG USE FOR UNKNOWN INDICATION
     Dosage: 1 TABLET,  DAILY

REACTIONS (6)
  - FALL [None]
  - HYPERSENSITIVITY [None]
  - HYPOTENSION [None]
  - OEDEMA PERIPHERAL [None]
  - URTICARIA [None]
  - VOMITING [None]
